FAERS Safety Report 6326894-0 (Version None)
Quarter: 2009Q3

REPORT INFORMATION
  Report Type: 
  Country: None (occurrence: None)
  Receive Date: 20090825
  Receipt Date: 20090814
  Transmission Date: 20100115
  Serious: Yes (Hospitalization, Other)
  Sender: FDA-Public Use
  Company Number: AT-BAXTER-2009BH012436

PATIENT
  Age: 50 Year
  Sex: Male
  Weight: 95 kg

DRUGS (6)
  1. GAMMAGARD LIQUID [Suspect]
     Indication: AXONAL NEUROPATHY
     Route: 042
     Dates: start: 20090626, end: 20090630
  2. GAMMAGARD LIQUID [Suspect]
     Indication: OFF LABEL USE
     Route: 042
     Dates: start: 20090626, end: 20090630
  3. BETA BLOCKING AGENTS [Concomitant]
  4. SELOKEN [Concomitant]
     Indication: HYPERTENSION
     Route: 048
  5. AMLODIPINE [Concomitant]
     Indication: HYPERTENSION
     Route: 048
  6. PANTOPRAZOLE SODIUM [Concomitant]
     Indication: GASTRITIS
     Route: 048

REACTIONS (1)
  - DEEP VEIN THROMBOSIS [None]
